FAERS Safety Report 4889514-8 (Version None)
Quarter: 2006Q1

REPORT INFORMATION
  Report Type: 
  Country: None (occurrence: None)
  Receive Date: 20060120
  Receipt Date: 20060110
  Transmission Date: 20060701
  Serious: Yes (Other)
  Sender: FDA-Public Use
  Company Number: 2006007208

PATIENT
  Sex: Female

DRUGS (7)
  1. NORVASC [Suspect]
     Indication: ILL-DEFINED DISORDER
     Dosage: 5 MG (DAILY), ORAL
     Route: 048
  2. GRAPEFRUIT JUICE (CITRUS PARADISI FRUIT JUICE) [Suspect]
     Indication: ILL-DEFINED DISORDER
  3. CARDENALIN (DOXAZOSIN) [Concomitant]
  4. PREDNISOLONE [Concomitant]
  5. RIZE (CLOTIAZEPAM) [Concomitant]
  6. ZANTAC [Concomitant]
  7. LASIX [Concomitant]

REACTIONS (2)
  - DIARRHOEA [None]
  - LOSS OF CONSCIOUSNESS [None]
